FAERS Safety Report 11436305 (Version 1)
Quarter: 2015Q3

REPORT INFORMATION
  Report Type: Spontaneous
  Country: US (occurrence: US)
  Receive Date: 20150821
  Receipt Date: 20150821
  Transmission Date: 20151125
  Serious: No
  Sender: FDA-Public Use
  Company Number: US-ELI_LILLY_AND_COMPANY-US201204006639

PATIENT
  Age: 83 Year
  Sex: Male
  Weight: 63.49 kg

DRUGS (6)
  1. AVODART [Concomitant]
     Active Substance: DUTASTERIDE
  2. UROXATRAL [Concomitant]
     Active Substance: ALFUZOSIN HYDROCHLORIDE
  3. CIALIS [Suspect]
     Active Substance: TADALAFIL
     Dosage: 5 MG, OTHER
  4. CIALIS [Suspect]
     Active Substance: TADALAFIL
     Dosage: 1 DF, OTHER
  5. CIALIS [Suspect]
     Active Substance: TADALAFIL
     Indication: BENIGN PROSTATIC HYPERPLASIA
     Dosage: 5 MG, QOD
  6. CIALIS [Suspect]
     Active Substance: TADALAFIL
     Dosage: 20 MG, UNKNOWN
     Route: 065

REACTIONS (4)
  - Dry mouth [Unknown]
  - Drug ineffective [Unknown]
  - Drug dose omission [Unknown]
  - Wrong technique in product usage process [Unknown]
